FAERS Safety Report 11182285 (Version 1)
Quarter: 2015Q2

REPORT INFORMATION
  Report Type: Spontaneous
  Country: US (occurrence: US)
  Receive Date: 20150611
  Receipt Date: 20150611
  Transmission Date: 20150821
  Serious: No
  Sender: FDA-Public Use
  Company Number: US-ASTELLAS-2015US009206

PATIENT
  Age: 83 Year
  Sex: Male

DRUGS (1)
  1. XTANDI [Suspect]
     Active Substance: ENZALUTAMIDE
     Indication: PROSTATE CANCER METASTATIC
     Route: 048
     Dates: start: 20150218

REACTIONS (7)
  - Decreased appetite [Not Recovered/Not Resolved]
  - Myalgia [Recovering/Resolving]
  - Dizziness [Not Recovered/Not Resolved]
  - Bone pain [Recovering/Resolving]
  - Product size issue [Not Recovered/Not Resolved]
  - Hypotension [Recovering/Resolving]
  - Dysphagia [Not Recovered/Not Resolved]

NARRATIVE: CASE EVENT DATE: 201502
